FAERS Safety Report 15376917 (Version 2)
Quarter: 2018Q4

REPORT INFORMATION
  Report Type: Spontaneous
  Country: IT (occurrence: IT)
  Receive Date: 20180913
  Receipt Date: 20181018
  Transmission Date: 20190204
  Serious: Yes (Disabling)
  Sender: FDA-Public Use
  Company Number: IT-EMD SERONO-9043190

PATIENT
  Age: 29 Year
  Sex: Female

DRUGS (1)
  1. REBIF [Suspect]
     Active Substance: INTERFERON BETA-1A
     Indication: MULTIPLE SCLEROSIS
     Dates: start: 20091127, end: 2018

REACTIONS (2)
  - Deafness neurosensory [Not Recovered/Not Resolved]
  - Blood homocysteine increased [Unknown]

NARRATIVE: CASE EVENT DATE: 20180606
